FAERS Safety Report 5842974-8 (Version None)
Quarter: 2008Q3

REPORT INFORMATION
  Report Type: 
  Country: None (occurrence: None)
  Receive Date: 20080813
  Receipt Date: 20080804
  Transmission Date: 20090109
  Serious: Yes (Other)
  Sender: FDA-Public Use
  Company Number: US-JNJFOC-20080601904

PATIENT
  Sex: Female
  Weight: 77.11 kg

DRUGS (8)
  1. REMICADE [Suspect]
     Indication: RHEUMATOID ARTHRITIS
     Route: 042
  2. METHOTREXATE [Concomitant]
     Indication: RHEUMATOID ARTHRITIS
  3. IRON PILLS [Concomitant]
     Indication: IRON DEFICIENCY
     Dosage: 1YEAR
  4. PREDNISONE TAB [Concomitant]
  5. RANITIDINE [Concomitant]
     Indication: RHEUMATOID ARTHRITIS
     Dosage: 2-3 MONTHS
  6. ALPRAZOL [Concomitant]
     Indication: ANXIETY
     Dosage: 1YEAR
  7. FOLIC ACID [Concomitant]
     Indication: BLOOD IRON
     Dosage: 1YEAR
  8. ZOLOFT [Concomitant]
     Indication: ANXIETY
     Dosage: 2-3 YEARS

REACTIONS (4)
  - ARTHRALGIA [None]
  - DRUG INEFFECTIVE [None]
  - JOINT INJURY [None]
  - JOINT SWELLING [None]
